FAERS Safety Report 6329631-9 (Version None)
Quarter: 2009Q3

REPORT INFORMATION
  Report Type: 
  Country: None (occurrence: None)
  Receive Date: 20090826
  Receipt Date: 20090819
  Transmission Date: 20100115
  Serious: Yes (Other)
  Sender: FDA-Public Use
  Company Number: US-AVENTIS-200917505US

PATIENT
  Sex: Male

DRUGS (3)
  1. APIDRA [Suspect]
     Dosage: DOSE: UNK
     Route: 051
  2. LANTUS [Suspect]
     Dosage: DOSE: UNK
  3. OPTICLIK (INSULIN INJECTION PEN) [Suspect]

REACTIONS (2)
  - HYPOGLYCAEMIA [None]
  - OVERDOSE [None]
